FAERS Safety Report 26000574 (Version 1)
Quarter: 2025Q4

REPORT INFORMATION
  Report Type: Spontaneous
  Country: US (occurrence: None)
  Receive Date: 20251104
  Receipt Date: 20251104
  Transmission Date: 20260118
  Serious: No
  Sender: FDA-CTU
  Company Number: None

PATIENT
  Age: 41 Year
  Sex: Male
  Weight: 90.9 kg

DRUGS (2)
  1. ZEPBOUND [Suspect]
     Active Substance: TIRZEPATIDE
     Indication: Weight decreased
  2. TIRZEPATIDE [Suspect]
     Active Substance: TIRZEPATIDE

REACTIONS (2)
  - Manufacturing product shipping issue [None]
  - Product storage error [None]

NARRATIVE: CASE EVENT DATE: 20251104
